FAERS Safety Report 8009839 (Version 4)
Quarter: 2013Q1

REPORT INFORMATION
  Report Type: Report from Study
  Country: IE (occurrence: IE)
  Receive Date: 20110627
  Receipt Date: 20130215
  Transmission Date: 20140127
  Serious: Yes (Other)
  Sender: FDA-Public Use
  Company Number: IE-JNJFOC-20110607352

PATIENT
  Age: 72 Year
  Sex: Male
  Weight: 98.7 kg

DRUGS (13)
  1. ABIRATERONE ACETATE [Suspect]
     Route: 048
  2. ABIRATERONE ACETATE [Suspect]
     Indication: PROSTATE CANCER METASTATIC
     Route: 048
     Dates: start: 20110419
  3. AMLODIPINE [Concomitant]
     Indication: BLOOD PRESSURE INCREASED
     Route: 048
  4. GLUCOSAMINE [Concomitant]
     Indication: ARTHRALGIA
     Route: 048
  5. IDEOS [Concomitant]
     Indication: BLOOD CALCIUM DECREASED
     Route: 048
  6. OXYCONTIN [Concomitant]
     Indication: PAIN
     Route: 048
     Dates: start: 201004
  7. OXYNORM [Concomitant]
     Indication: PAIN
     Route: 048
     Dates: start: 201004
  8. FIRMAGON [Concomitant]
     Indication: PROSTATE CANCER
     Route: 058
     Dates: start: 201004
  9. ZOMETA [Concomitant]
     Indication: METASTASES TO BONE
     Route: 042
     Dates: start: 201004
  10. ATORVASTATIN [Concomitant]
     Indication: BLOOD CHOLESTEROL INCREASED
     Route: 048
  11. RAMIPRIL [Concomitant]
     Indication: BLOOD PRESSURE INCREASED
     Route: 048
     Dates: start: 201104
  12. MOVICOL [Concomitant]
     Indication: CONSTIPATION
     Route: 048
     Dates: start: 201104
  13. PREDNISOLONE [Concomitant]
     Indication: PROSTATE CANCER METASTATIC
     Route: 048
     Dates: start: 20110419

REACTIONS (1)
  - Blood alkaline phosphatase increased [Not Recovered/Not Resolved]
